FAERS Safety Report 14295389 (Version 1)
Quarter: 2017Q4

REPORT INFORMATION
  Report Type: Spontaneous
  Country: US (occurrence: US)
  Receive Date: 20171218
  Receipt Date: 20171218
  Transmission Date: 20180321
  Serious: No
  Sender: FDA-Public Use
  Company Number: US-PFIZER INC-2017536716

PATIENT
  Age: 60 Year
  Sex: Female
  Weight: 127 kg

DRUGS (1)
  1. MEDROL [Suspect]
     Active Substance: METHYLPREDNISOLONE
     Indication: RHEUMATOID ARTHRITIS
     Dosage: 4 MG, 2X/DAY
     Route: 048
     Dates: start: 2016, end: 201711

REACTIONS (2)
  - Blood glucose abnormal [Unknown]
  - Weight abnormal [Unknown]
